FAERS Safety Report 6165247-5 (Version None)
Quarter: 2009Q2

REPORT INFORMATION
  Report Type: 
  Country: None (occurrence: None)
  Receive Date: 20090423
  Receipt Date: 20090420
  Transmission Date: 20091009
  Serious: Yes (Hospitalization, Other)
  Sender: FDA-Public Use
  Company Number: US-ASTRAZENECA-2009UW09847

PATIENT
  Age: 87 Year
  Sex: Female
  Weight: 59.4 kg

DRUGS (6)
  1. CRESTOR [Suspect]
     Route: 048
  2. PLAVIX [Concomitant]
     Indication: CARDIAC DISORDER
  3. CARDIZEM [Concomitant]
     Indication: CARDIAC DISORDER
  4. LANOXIN [Concomitant]
     Indication: CARDIAC DISORDER
  5. BLOOD PRESSURE MEDICATION [Concomitant]
     Indication: HYPERTENSION
  6. THYROID MEDICATION [Concomitant]
     Indication: THYROID DISORDER

REACTIONS (6)
  - ALTERED STATE OF CONSCIOUSNESS [None]
  - BLOOD SODIUM DECREASED [None]
  - FALL [None]
  - MYALGIA [None]
  - RENAL PAIN [None]
  - SPINAL FRACTURE [None]
